FAERS Safety Report 7228130-X (Version None)
Quarter: 2011Q1

REPORT INFORMATION
  Report Type: 
  Country: None (occurrence: None)
  Receive Date: 20110114
  Receipt Date: 20101230
  Transmission Date: 20110831
  Serious: No
  Sender: FDA-Public Use
  Company Number: US-B.I. PHARMACEUTICALS,INC./RIDGEFIELD-2011-BP-00338BP

PATIENT
  Age: 84 Year
  Sex: Male

DRUGS (1)
  1. ZANTAC 150 [Suspect]

REACTIONS (1)
  - DRUG INEFFECTIVE [None]
